FAERS Safety Report 7409389-2 (Version None)
Quarter: 2011Q2

REPORT INFORMATION
  Report Type: 
  Country: None (occurrence: None)
  Receive Date: 20110412
  Receipt Date: 20110321
  Transmission Date: 20111010
  Serious: Yes (Hospitalization, Other)
  Sender: FDA-Public Use
  Company Number: US-BAYER-200929761NA

PATIENT
  Age: 33 Year
  Sex: Female
  Weight: 136.5 kg

DRUGS (3)
  1. IBUPROFEN [Concomitant]
     Indication: PAIN
     Dosage: 200 MG, QD
  2. YASMIN [Suspect]
     Indication: CONTRACEPTION
     Dosage: UNK
     Dates: start: 20030101, end: 20070801
  3. COLACE [Concomitant]
     Dosage: UNK UNK, BID

REACTIONS (9)
  - PAIN IN EXTREMITY [None]
  - HYPOKALAEMIA [None]
  - PANIC DISORDER [None]
  - ARRHYTHMIA [None]
  - CHEST PAIN [None]
  - DEEP VEIN THROMBOSIS [None]
  - ANXIETY [None]
  - PULMONARY EMBOLISM [None]
  - DEPRESSION [None]
